FAERS Safety Report 5087207-8 (Version None)
Quarter: 2006Q3

REPORT INFORMATION
  Report Type: 
  Country: None (occurrence: None)
  Receive Date: 20060821
  Receipt Date: 20060804
  Transmission Date: 20061208
  Serious: Yes (Disabling)
  Sender: FDA-Public Use
  Company Number: 228342

PATIENT
  Age: 55 Year
  Sex: Male

DRUGS (1)
  1. XOLAIR [Suspect]
     Indication: DRUG USE FOR UNKNOWN INDICATION
     Dosage: 300 MG, SUBCUTANEOUS
     Route: 058
     Dates: start: 20060724

REACTIONS (2)
  - BRONCHOSPASM [None]
  - PYREXIA [None]
